FAERS Safety Report 8133412 (Version 5)
Quarter: 2013Q1

REPORT INFORMATION
  Report Type: Spontaneous
  Country: US (occurrence: US)
  Receive Date: 20110913
  Receipt Date: 20130205
  Transmission Date: 20140127
  Serious: Yes (Life-Threatening, Hospitalization)
  Sender: FDA-Public Use
  Company Number: US-B.I. PHARMACEUTICALS,INC./RIDGEFIELD-2011-BP-21683BP

PATIENT
  Age: 77 Year
  Sex: Male

DRUGS (11)
  1. PRADAXA [Suspect]
     Indication: ATRIAL FIBRILLATION
     Dosage: 300 MG
     Route: 048
     Dates: start: 201107, end: 2013
  2. ASPIRIN [Concomitant]
     Indication: CORONARY ARTERY DISEASE
     Route: 048
  3. ALTACE [Concomitant]
     Dosage: 2.5 MG
     Route: 048
  4. PRAVASTATIN [Concomitant]
     Dosage: 10 MG
     Route: 048
  5. PROSCAR [Concomitant]
     Indication: BENIGN PROSTATIC HYPERPLASIA
     Dosage: 5 MG
     Route: 048
  6. INSPRA [Concomitant]
     Dosage: 25 MG
     Route: 048
  7. AMIODARONE HCL [Concomitant]
     Indication: CORONARY ARTERY DISEASE
     Dosage: 200 MG
     Route: 048
  8. AMLODIPINE [Concomitant]
     Indication: HYPERTENSION
     Dosage: 5 MG
     Route: 048
  9. COREG [Concomitant]
     Indication: HYPERTENSION
     Dosage: 12.5 MG
     Route: 048
  10. LASIX [Concomitant]
     Dosage: 20 MG
  11. PANTOPRAZOLE [Concomitant]
     Dosage: 40 MG

REACTIONS (4)
  - Gastrointestinal haemorrhage [Recovered/Resolved]
  - Gastrointestinal arteriovenous malformation [Unknown]
  - Gastritis [Unknown]
  - Malaise [Unknown]
